FAERS Safety Report 25870080 (Version 1)
Quarter: 2025Q4

REPORT INFORMATION
  Report Type: Spontaneous
  Country: CH (occurrence: CH)
  Receive Date: 20251001
  Receipt Date: 20251001
  Transmission Date: 20260118
  Serious: Yes (Other)
  Sender: MERCK SHARP & DOHME LLC
  Company Number: CH-009507513-2334643

PATIENT
  Age: 74 Year
  Sex: Female

DRUGS (1)
  1. PEMBROLIZUMAB [Suspect]
     Active Substance: PEMBROLIZUMAB
     Indication: Lung carcinoma cell type unspecified stage 0

REACTIONS (3)
  - Gastrointestinal toxicity [Unknown]
  - Immune-mediated enterocolitis [Unknown]
  - Immune-mediated dermatitis [Unknown]
